FAERS Safety Report 25341974 (Version 1)
Quarter: 2025Q2

REPORT INFORMATION
  Report Type: Spontaneous
  Country: US (occurrence: None)
  Receive Date: 20250520
  Receipt Date: 20250520
  Transmission Date: 20250717
  Serious: Yes (Life-Threatening, Hospitalization, Other)
  Sender: FDA-CTU
  Company Number: None

PATIENT
  Age: 24 Year
  Sex: Male
  Weight: 67.5 kg

DRUGS (1)
  1. SAPHRIS [Suspect]
     Active Substance: ASENAPINE MALEATE
     Indication: Mental disorder
     Route: 060
     Dates: start: 20230529, end: 20230625

REACTIONS (5)
  - Dehydration [None]
  - Palpitations [None]
  - Mania [None]
  - Psychotic disorder [None]
  - Reduced facial expression [None]

NARRATIVE: CASE EVENT DATE: 20230625
